FAERS Safety Report 5728177-6 (Version None)
Quarter: 2008Q2

REPORT INFORMATION
  Report Type: 
  Country: None (occurrence: None)
  Receive Date: 20080430
  Receipt Date: 20080415
  Transmission Date: 20081010
  Serious: Yes (Disabling)
  Sender: FDA-Public Use
  Company Number: US-1165884

PATIENT

DRUGS (1)
  1. MAXIDEX [Suspect]
     Dosage: (OPHTHALMIC)
     Route: 047

REACTIONS (1)
  - BLINDNESS [None]
